FAERS Safety Report 4675690-9 (Version None)
Quarter: 2005Q2

REPORT INFORMATION
  Report Type: 
  Country: None (occurrence: None)
  Receive Date: 20050527
  Receipt Date: 20050128
  Transmission Date: 20051028
  Serious: No
  Sender: FDA-Public Use
  Company Number: US-BRISTOL-MYERS SQUIBB COMPANY-12841375

PATIENT
  Age: 69 Year
  Sex: Male
  Weight: 35 kg

DRUGS (15)
  1. ERBITUX [Suspect]
     Indication: COLORECTAL CANCER METASTATIC
     Route: 042
     Dates: start: 20050113
  2. ATIVAN [Concomitant]
  3. CAMPTOSAR [Concomitant]
     Indication: COLORECTAL CANCER METASTATIC
     Dosage: 125 MG/M2 - 20% IV EVERY 2 WEEKS.
     Route: 042
     Dates: start: 20050107
  4. CELEBREX [Concomitant]
  5. COMPAZINE [Concomitant]
  6. DURAGESIC-100 [Concomitant]
  7. IMODIUM [Concomitant]
  8. K-DUR 10 [Concomitant]
  9. LOMOTIL [Concomitant]
  10. MECLIZINE [Concomitant]
  11. MEGACE [Concomitant]
  12. MYLANTA [Concomitant]
  13. PREVACID [Concomitant]
  14. TYLENOL (CAPLET) [Concomitant]
  15. XANAX [Concomitant]

REACTIONS (3)
  - CHEILITIS [None]
  - DERMATITIS ACNEIFORM [None]
  - MUCOSAL INFLAMMATION [None]
